FAERS Safety Report 4798045-5 (Version None)
Quarter: 2005Q3

REPORT INFORMATION
  Report Type: 
  Country: None (occurrence: None)
  Receive Date: 20050929
  Receipt Date: 20050812
  Transmission Date: 20060218
  Serious: No
  Sender: FDA-Public Use
  Company Number: 05P-163-0308250-00

PATIENT
  Age: 63 Year
  Sex: Female
  Weight: 92.0802 kg

DRUGS (5)
  1. HUMIRA [Suspect]
     Indication: RHEUMATOID ARTHRITIS
     Dosage: 40 MG, SUBCUTANEOUS
     Route: 058
     Dates: start: 20040101, end: 20040501
  2. METHOTREXATE [Concomitant]
  3. HYDROXYCHLOROQUINE PHOSPHATE [Concomitant]
  4. ETODOLAC [Concomitant]
  5. ALENDRONATE SODIUM [Concomitant]

REACTIONS (3)
  - IMPAIRED HEALING [None]
  - SKIN LESION [None]
  - WOUND INFECTION [None]
